FAERS Safety Report 24612760 (Version 1)
Quarter: 2024Q4

REPORT INFORMATION
  Report Type: Spontaneous
  Country: CH (occurrence: CH)
  Receive Date: 20241113
  Receipt Date: 20241113
  Transmission Date: 20250115
  Serious: Yes (Other)
  Sender: ABBVIE
  Company Number: CH-ABBVIE-5904605

PATIENT
  Age: 36 Year
  Sex: Male
  Weight: 76 kg

DRUGS (3)
  1. RINVOQ [Suspect]
     Active Substance: UPADACITINIB
     Indication: Crohn^s disease
     Route: 048
     Dates: start: 20240723, end: 20240920
  2. RINVOQ [Suspect]
     Active Substance: UPADACITINIB
     Indication: Crohn^s disease
     Route: 048
     Dates: start: 20240920
  3. ARCOXIA [Concomitant]
     Active Substance: ETORICOXIB
     Indication: Product used for unknown indication
     Dosage: 2 TIMES PER DAY
     Route: 048
     Dates: start: 20240603

REACTIONS (15)
  - Blood creatine phosphokinase increased [Recovered/Resolved]
  - Aspartate aminotransferase increased [Recovered/Resolved]
  - Blood bilirubin decreased [Recovered/Resolved]
  - Neutrophil count increased [Recovering/Resolving]
  - White blood cell count increased [Recovering/Resolving]
  - Alanine aminotransferase increased [Recovered/Resolved]
  - Pyrexia [Unknown]
  - Fatigue [Unknown]
  - Nausea [Unknown]
  - Malaise [Unknown]
  - Rash [Unknown]
  - Eosinophilia [Unknown]
  - Chromaturia [Unknown]
  - Jaundice [Unknown]
  - Myalgia [Unknown]

NARRATIVE: CASE EVENT DATE: 20240603
